FAERS Safety Report 6985607-X (Version None)
Quarter: 2010Q3

REPORT INFORMATION
  Report Type: 
  Country: None (occurrence: None)
  Receive Date: 20100915
  Receipt Date: 20100913
  Transmission Date: 20110219
  Serious: Yes (Hospitalization)
  Sender: FDA-Public Use
  Company Number: CA-BRISTOL-MYERS SQUIBB COMPANY-14952444

PATIENT
  Age: 82 Year
  Sex: Female

DRUGS (15)
  1. ORENCIA [Suspect]
     Indication: RHEUMATOID ARTHRITIS
     Dosage: NO OF INFUSON:10,LAST INFUSION ON 26-JAN-2010 THERAPY DATES:28DEC09,19AUG10
     Route: 042
     Dates: start: 20091228
  2. METHOTREXATE [Concomitant]
  3. FOLIC ACID [Concomitant]
  4. LIPITOR [Concomitant]
  5. HYDROXYCHLOROQUINE [Concomitant]
  6. ELTROXIN [Concomitant]
  7. FUROSEMIDE [Concomitant]
  8. NORVASC [Concomitant]
  9. ACETYLSALICYLIC ACID [Concomitant]
  10. SOFLAX [Concomitant]
  11. COZAAR [Concomitant]
  12. VITAMIN D [Concomitant]
  13. ASCORBIC ACID [Concomitant]
  14. NEXIUM [Concomitant]
  15. FERROUS GLUCONATE [Concomitant]

REACTIONS (2)
  - PNEUMONIA [None]
  - PULMONARY OEDEMA [None]
